FAERS Safety Report 7562977-5 (Version None)
Quarter: 2011Q2

REPORT INFORMATION
  Report Type: 
  Country: None (occurrence: None)
  Receive Date: 20110615
  Receipt Date: 20110608
  Transmission Date: 20111010
  Serious: Yes (Hospitalization)
  Sender: FDA-Public Use
  Company Number: FUR-11-04

PATIENT
  Age: 76 Year
  Sex: Female

DRUGS (3)
  1. TRIAMTERENE [Concomitant]
  2. FUROSEMIDE [Suspect]
     Indication: HYPERTENSION
  3. HYDROCHLOROTHIAZIDE [Concomitant]

REACTIONS (6)
  - STRESS CARDIOMYOPATHY [None]
  - DISORIENTATION [None]
  - HYPONATRAEMIA [None]
  - ACUTE CORONARY SYNDROME [None]
  - CONFUSIONAL STATE [None]
  - AGITATION [None]
